FAERS Safety Report 5304910-2 (Version None)
Quarter: 2007Q2

REPORT INFORMATION
  Report Type: 
  Country: None (occurrence: None)
  Receive Date: 20070416
  Receipt Date: 20070406
  Transmission Date: 20071010
  Serious: Yes (Hospitalization)
  Sender: FDA-Public Use
  Company Number: 155000USA

PATIENT
  Age: 60 Year
  Sex: Male

DRUGS (5)
  1. KETOCONAZOLE [Suspect]
     Indication: NEOPLASM MALIGNANT
     Dosage: (400 MG); ORAL
     Route: 048
     Dates: start: 20070103, end: 20070110
  2. VINFLUNINE [Suspect]
     Indication: NEOPLASM MALIGNANT
     Dosage: (296 MG), INTRAVENOUS (NOT OTHERWISE SPECIFIED)
     Route: 042
     Dates: start: 20070104, end: 20070104
  3. OXYCODONE HCL [Concomitant]
  4. ESOMEPRAZOLE MAGNESIUM [Concomitant]
  5. SENNA ALEXANDRINA [Concomitant]

REACTIONS (6)
  - AGRANULOCYTOSIS [None]
  - ANAEMIA [None]
  - CELLULITIS [None]
  - NEUTROPENIA [None]
  - OEDEMA PERIPHERAL [None]
  - SKIN REACTION [None]
